FAERS Safety Report 17274628 (Version 1)
Quarter: 2020Q1

REPORT INFORMATION
  Report Type: Spontaneous
  Country: None (occurrence: US)
  Receive Date: 20200115
  Receipt Date: 20200115
  Transmission Date: 20200409
  Serious: No
  Sender: FDA-Public Use
  Company Number: US-INTERNATIONAL MEDICATION SYSTEMS, LIMITED-2079082

PATIENT
  Age: 53 Year
  Sex: Female
  Weight: 56.36 kg

DRUGS (4)
  1. PHYTONADIONE. [Suspect]
     Active Substance: PHYTONADIONE
     Indication: VITAMIN K DEFICIENCY
     Dates: start: 20190816, end: 20190901
  2. TIROSINT [Concomitant]
     Active Substance: LEVOTHYROXINE SODIUM
  3. CYTOMEL [Concomitant]
     Active Substance: LIOTHYRONINE SODIUM
  4. POTASSIUM CITRATE. [Concomitant]
     Active Substance: POTASSIUM CITRATE

REACTIONS (1)
  - Rash pruritic [Recovering/Resolving]

NARRATIVE: CASE EVENT DATE: 20190901
